FAERS Safety Report 13755678 (Version 1)
Quarter: 2017Q3

REPORT INFORMATION
  Report Type: Report from Study
  Country: BR (occurrence: BR)
  Receive Date: 20170714
  Receipt Date: 20170714
  Transmission Date: 20171127
  Serious: Yes (Other)
  Sender: FDA-Public Use
  Company Number: PHHY2017BR102463

PATIENT
  Sex: Female
  Weight: 93 kg

DRUGS (2)
  1. FORASEQ [Suspect]
     Active Substance: BUDESONIDE\FORMOTEROL FUMARATE
     Dosage: 1 DF (BUDESONIDE 400 MCG, FORMOTEROL FUMARATE 12 MCG), BID
     Route: 055
  2. FORASEQ [Suspect]
     Active Substance: BUDESONIDE\FORMOTEROL FUMARATE
     Indication: ASTHMA
     Dosage: 1 DF (BUDESONIDE 200 MCG, FORMOTEROL FUMARATE 12 MCG), BID
     Route: 055

REACTIONS (4)
  - Weight increased [Unknown]
  - Dyspnoea [Unknown]
  - Expired product administered [Unknown]
  - Asthmatic crisis [Unknown]
